FAERS Safety Report 6929005-3 (Version None)
Quarter: 2010Q3

REPORT INFORMATION
  Report Type: 
  Country: None (occurrence: None)
  Receive Date: 20100817
  Receipt Date: 20100812
  Transmission Date: 20110219
  Serious: Yes (Death)
  Sender: FDA-Public Use
  Company Number: GXKR2010DE08985

PATIENT
  Age: 87 Year
  Sex: Female

DRUGS (4)
  1. METHOTREXATE [Suspect]
     Indication: POLYARTHRITIS
     Dosage: 15 MG, QW
     Route: 048
     Dates: start: 20080101
  2. FOSAVANCE [Concomitant]
     Indication: OSTEOPOROSIS
     Route: 048
  3. FOLSAEURE ^HEVERT^ [Concomitant]
     Route: 048
  4. NOVAMINSULFON ^BRAUN^ [Concomitant]
     Route: 048

REACTIONS (1)
  - PANCYTOPENIA [None]
